FAERS Safety Report 22226282 (Version 1)
Quarter: 2023Q2

REPORT INFORMATION
  Report Type: Spontaneous
  Country: DK (occurrence: DK)
  Receive Date: 20230419
  Receipt Date: 20230419
  Transmission Date: 20230721
  Serious: Yes (Life-Threatening, Hospitalization)
  Sender: FDA-Public Use
  Company Number: None

PATIENT
  Age: 78 Year
  Sex: Female

DRUGS (1)
  1. XARELTO [Suspect]
     Active Substance: RIVAROXABAN
     Indication: Atrial fibrillation
     Dosage: STRENGTH: 20 MG
     Route: 048
     Dates: start: 20191002, end: 20230319

REACTIONS (5)
  - Cerebral haemorrhage [Recovered/Resolved]
  - Anal incontinence [Recovered/Resolved]
  - Facial paralysis [Recovered/Resolved]
  - Facial paresis [Recovered/Resolved]
  - Depressed level of consciousness [Recovered/Resolved]

NARRATIVE: CASE EVENT DATE: 20230319
